FAERS Safety Report 8889505 (Version 1)
Quarter: 2012Q4

REPORT INFORMATION
  Report Type: 
  Country: ES (occurrence: ES)
  Receive Date: 20121107
  Receipt Date: 20121107
  Transmission Date: 20130627
  Serious: Yes (Hospitalization, Other)
  Sender: FDA-Public Use
  Company Number: ES-MERCK-1210ESP013014

PATIENT
  Age: 66 Year
  Sex: Female

DRUGS (6)
  1. EFFICIB [Suspect]
     Indication: DIABETES MELLITUS
     Dosage: UNK
     Route: 048
     Dates: start: 201202, end: 20120521
  2. GABAPENTIN [Suspect]
     Indication: NEURALGIA
     Dosage: UNK
     Route: 048
     Dates: start: 201204, end: 20120514
  3. ATORVASTATIN CALCIUM [Suspect]
     Indication: HYPERLIPIDAEMIA
     Dosage: UNK, qd
     Route: 048
     Dates: start: 201202, end: 20120520
  4. SIMVASTATIN [Concomitant]
     Dosage: UNK, qd
     Route: 048
     Dates: start: 2006, end: 201202
  5. CLOPIDOGREL [Concomitant]
     Indication: MYOCARDIAL ISCHAEMIA
     Dosage: UNK, qd
     Route: 048
     Dates: start: 201202
  6. BISOPROLOL [Concomitant]
     Indication: HYPERTENSION
     Dosage: UNK, qd
     Route: 048
     Dates: start: 201202

REACTIONS (1)
  - Cholestasis [Recovered/Resolved]
